FAERS Safety Report 4882340-5 (Version None)
Quarter: 2006Q1

REPORT INFORMATION
  Report Type: 
  Country: None (occurrence: None)
  Receive Date: 20060117
  Receipt Date: 20051102
  Transmission Date: 20060701
  Serious: Yes (Other)
  Sender: FDA-Public Use
  Company Number: JP-ROCHE-424484

PATIENT
  Age: 47 Year
  Sex: Male
  Weight: 54 kg

DRUGS (9)
  1. CELLCEPT [Suspect]
     Route: 048
     Dates: end: 20040521
  2. CELLCEPT [Suspect]
     Route: 048
     Dates: start: 20041107, end: 20041108
  3. CELLCEPT [Suspect]
     Route: 048
     Dates: start: 20041109, end: 20041116
  4. CELLCEPT [Suspect]
     Route: 048
     Dates: start: 20041117, end: 20050219
  5. CELLCEPT [Suspect]
     Route: 048
     Dates: start: 20050220
  6. SIMULECT [Concomitant]
  7. PREDONINE [Concomitant]
  8. CYCLOSPORINE [Concomitant]
  9. PROGRAF [Concomitant]
     Dates: start: 20041201

REACTIONS (3)
  - DIARRHOEA [None]
  - NEUTROPHIL MORPHOLOGY ABNORMAL [None]
  - POLYMORPHONUCLEAR CHROMATIN CLUMPING [None]
